FAERS Safety Report 9292964 (Version 2)
Quarter: 2013Q2

REPORT INFORMATION
  Report Type: Spontaneous
  Country: US (occurrence: None)
  Receive Date: 20130513
  Receipt Date: 20130530
  Transmission Date: 20140414
  Serious: Yes (Life-Threatening, Hospitalization)
  Sender: FDA-Public Use
  Company Number: US-ZYDUS-001162

PATIENT
  Age: 61 Year
  Sex: Male

DRUGS (3)
  1. AMIODARONE [Suspect]
     Indication: SHOCK
     Dosage: 200.00*MG-2.0DAYS /
  2. LIDOCAINE (LIDOCAINE0 [Concomitant]
  3. MEXILETINE (MEXILETINE) [Concomitant]

REACTIONS (3)
  - Ventricular tachycardia [None]
  - Hyperthyroidism [None]
  - Cardiac murmur [None]
